FAERS Safety Report 9796591 (Version 2)
Quarter: 2014Q1

REPORT INFORMATION
  Report Type: Spontaneous
  Country: JP (occurrence: JP)
  Receive Date: 20140103
  Receipt Date: 20140103
  Transmission Date: 20141002
  Serious: Yes (Hospitalization)
  Sender: FDA-Public Use
  Company Number: JP-BAYER-2013-131711

PATIENT
  Age: 59 Year
  Sex: Male
  Weight: 65 kg

DRUGS (10)
  1. STIVARGA [Suspect]
     Indication: COLORECTAL CANCER
     Dosage: 160 MG, QD (3 WEEKS AND OFF FOR 1 WEEK)
     Route: 048
     Dates: start: 20130912, end: 20130918
  2. OPIUM [Concomitant]
  3. TAKEPRON [Concomitant]
     Dosage: DAILY DOSE 15 MG
     Route: 048
  4. MAGLAX [Concomitant]
     Dosage: DAILY DOSE 1980 MG
     Route: 048
  5. LOXONIN [Concomitant]
     Indication: COLON CANCER
     Dosage: DAILY DOSE 180 MG
     Route: 048
  6. SELBEX [Concomitant]
     Dosage: DAILY DOSE 150 MG
     Route: 048
  7. PURSENNID [Concomitant]
     Dosage: DAILY DOSE 24 MG
     Route: 048
  8. OXYCONTIN [Concomitant]
     Indication: COLON CANCER
     Dosage: DAILY DOSE 50 MG
     Route: 048
  9. OXINORM [OXYCODONE HYDROCHLORIDE] [Concomitant]
     Dosage: DAILY DOSE 20 MG
     Route: 048
  10. HIRUDOID [Concomitant]
     Indication: PROPHYLAXIS
     Dosage: UNK
     Route: 061

REACTIONS (11)
  - Dizziness [Recovered/Resolved]
  - Hyperkalaemia [Recovered/Resolved]
  - C-reactive protein increased [Not Recovered/Not Resolved]
  - Blood urea increased [Recovered/Resolved]
  - Blood sodium decreased [Unknown]
  - Blood creatine phosphokinase MB increased [Unknown]
  - Blood cholinesterase decreased [Unknown]
  - Fibrin degradation products increased [Unknown]
  - Aspartate aminotransferase increased [Recovered/Resolved]
  - Fibrin D dimer increased [Unknown]
  - Amylase decreased [Unknown]
